FAERS Safety Report 6733969-0 (Version None)
Quarter: 2010Q2

REPORT INFORMATION
  Report Type: 
  Country: None (occurrence: None)
  Receive Date: 20100520
  Receipt Date: 20100510
  Transmission Date: 20101027
  Serious: Yes (Death, Hospitalization)
  Sender: FDA-Public Use
  Company Number: DE-PFIZER INC-2010060757

PATIENT
  Age: 53 Year
  Sex: Male

DRUGS (5)
  1. DOXORUBICIN HCL [Suspect]
     Indication: LYMPHOMA
     Dosage: 4 CYCLES
  2. CYCLOPHOSPHAMIDE [Suspect]
     Indication: LYMPHOMA
     Dosage: 4 CYCLES
  3. VINCRISTINE SULFATE [Suspect]
     Indication: LYMPHOMA
     Dosage: 4 CYCLES
  4. PREDNISOLONE [Suspect]
     Indication: LYMPHOMA
     Dosage: 4 CYCLES
  5. RITUXIMAB [Suspect]
     Indication: LYMPHOMA
     Dosage: 4 CYCLES

REACTIONS (2)
  - HEPATIC FAILURE [None]
  - HEPATITIS B [None]
